FAERS Safety Report 14593591 (Version 1)
Quarter: 2018Q1

REPORT INFORMATION
  Report Type: Spontaneous
  Country: US (occurrence: US)
  Receive Date: 20180302
  Receipt Date: 20180302
  Transmission Date: 20180509
  Serious: Yes (Other)
  Sender: FDA-Public Use
  Company Number: None

PATIENT
  Sex: Female

DRUGS (1)
  1. OCREVUS [Suspect]
     Active Substance: OCRELIZUMAB
     Indication: MULTIPLE SCLEROSIS
     Dosage: FREQUENCY - Q 14 DAYS EVERY 6 MONTHS
     Route: 042
     Dates: start: 20180115, end: 20180227

REACTIONS (3)
  - Flushing [None]
  - Feeling abnormal [None]
  - Chest discomfort [None]
